FAERS Safety Report 4429041-5 (Version None)
Quarter: 2004Q3

REPORT INFORMATION
  Report Type: 
  Country: None (occurrence: None)
  Receive Date: 20040726
  Receipt Date: 20040310
  Transmission Date: 20050211
  Serious: No
  Sender: FDA-Public Use
  Company Number: USA040361370

PATIENT
  Age: 77 Year
  Sex: Female

DRUGS (3)
  1. FORTEO [Suspect]
     Indication: OSTEOPOROSIS
     Dosage: 20 UG DAY
     Dates: start: 20040303, end: 20040307
  2. ATENOLOL [Concomitant]
  3. CEFUROXIME [Concomitant]

REACTIONS (2)
  - ABDOMINAL PAIN [None]
  - BACK PAIN [None]
